FAERS Safety Report 21775657 (Version 2)
Quarter: 2022Q4

REPORT INFORMATION
  Report Type: Report from Study
  Country: US (occurrence: US)
  Receive Date: 20221226
  Receipt Date: 20221228
  Transmission Date: 20230113
  Serious: No
  Sender: FDA-Public Use
  Company Number: US-002147023-NVSC2022US296266

PATIENT
  Age: 40 Year
  Sex: Female

DRUGS (4)
  1. GLATOPA [Suspect]
     Active Substance: GLATIRAMER ACETATE
     Indication: Product used for unknown indication
     Dosage: 40 MG (3 TIMES/ WEEK)
     Route: 058
  2. GLATOPA [Suspect]
     Active Substance: GLATIRAMER ACETATE
     Dosage: 40 MG (3 TIMES A WEEK)
     Route: 058
     Dates: start: 20221221, end: 20221221
  3. GLATOPA [Suspect]
     Active Substance: GLATIRAMER ACETATE
     Dosage: UNK (TOOK YESTERDAY)
     Route: 065
  4. GLATOPA [Suspect]
     Active Substance: GLATIRAMER ACETATE
     Dosage: UNK (TOOK TODAY)
     Route: 065

REACTIONS (3)
  - Depressed mood [Recovered/Resolved]
  - Malaise [Unknown]
  - Incorrect product administration duration [Not Recovered/Not Resolved]

NARRATIVE: CASE EVENT DATE: 20221221
